FAERS Safety Report 4353378-1 (Version None)
Quarter: 2004Q2

REPORT INFORMATION
  Report Type: 
  Country: None (occurrence: None)
  Receive Date: 20040504
  Receipt Date: 20040504
  Transmission Date: 20050107
  Serious: Yes (Other)
  Sender: FDA-Public Use
  Company Number: None

PATIENT
  Age: 21 Year
  Sex: Female

DRUGS (1)
  1. NAVANE [Suspect]
     Indication: SCHIZOPHRENIA, PARANOID TYPE
     Dosage: ONE AT BEDTIME ONCE A MONTH

REACTIONS (6)
  - BACK PAIN [None]
  - MUSCLE CRAMP [None]
  - NIGHTMARE [None]
  - PIGMENTATION DISORDER [None]
  - SKIN DISORDER [None]
  - THIRST [None]
